FAERS Safety Report 14565299 (Version 5)
Quarter: 2018Q1

REPORT INFORMATION
  Report Type: Report from Study
  Country: FR (occurrence: FR)
  Receive Date: 20180223
  Receipt Date: 20180322
  Transmission Date: 20180509
  Serious: Yes (Hospitalization)
  Sender: FDA-Public Use
  Company Number: FR-ROCHE-1906533

PATIENT
  Age: 20 Year
  Sex: Male
  Weight: 70 kg

DRUGS (17)
  1. LYRICA [Concomitant]
     Active Substance: PREGABALIN
     Indication: MULTIPLE SCLEROSIS
     Route: 048
     Dates: start: 201510
  2. CETIRIZINE [Concomitant]
     Active Substance: CETIRIZINE HYDROCHLORIDE
     Route: 048
     Dates: start: 20170214, end: 20170214
  3. CETIRIZINE [Concomitant]
     Active Substance: CETIRIZINE HYDROCHLORIDE
     Route: 048
     Dates: start: 20170719, end: 20170719
  4. OCRELIZUMAB. [Suspect]
     Active Substance: OCRELIZUMAB
     Indication: RELAPSING-REMITTING MULTIPLE SCLEROSIS
     Dosage: MOST RECENT DOSE ADMINISTERED PRIOR TO THE EVENT: 300 MG ON 14/FEB/2017?ON DAYS 1 AND 15 OF FIRST CY
     Route: 042
     Dates: start: 20170131
  5. BROMAZEPAM [Concomitant]
     Active Substance: BROMAZEPAM
     Route: 048
     Dates: start: 201601
  6. DOLIPRANE [Concomitant]
     Active Substance: ACETAMINOPHEN
     Indication: HEADACHE
     Route: 048
     Dates: start: 20170225, end: 20170227
  7. DUPHALAC (FRANCE) [Concomitant]
     Active Substance: LACTULOSE
     Indication: PROPHYLAXIS
     Route: 048
     Dates: start: 20170621, end: 20170622
  8. DAFALGAN [Concomitant]
     Active Substance: ACETAMINOPHEN
     Route: 048
     Dates: start: 20170214, end: 20170214
  9. METHYLPREDNISOLONE. [Suspect]
     Active Substance: METHYLPREDNISOLONE
     Dosage: ONCE BEFORE INFUSION
     Route: 042
     Dates: start: 20170719, end: 20170719
  10. OCRELIZUMAB. [Suspect]
     Active Substance: OCRELIZUMAB
     Dosage: 19/JUL/2017
     Route: 042
  11. DAFALGAN [Concomitant]
     Active Substance: ACETAMINOPHEN
     Route: 048
     Dates: start: 20170719, end: 20170719
  12. EUPHYTOSE [Concomitant]
     Active Substance: HERBALS
     Indication: INSOMNIA
     Dosage: 2 TABLET
     Route: 048
     Dates: start: 20171116, end: 20171116
  13. METHYLPREDNISOLONE. [Suspect]
     Active Substance: METHYLPREDNISOLONE
     Dosage: MOST RECENT DOSE ADMINISTERED PRIOR TO THE EVENT?ONCE BEFORE INFUSION
     Route: 042
     Dates: start: 20170214, end: 20170214
  14. DOLIPRANE [Concomitant]
     Active Substance: ACETAMINOPHEN
     Route: 048
     Dates: start: 20170131, end: 20170131
  15. METHYLPREDNISOLONE. [Suspect]
     Active Substance: METHYLPREDNISOLONE
     Indication: PREMEDICATION
     Dosage: ONCE BEFORE INFUSION
     Route: 042
     Dates: start: 20170131, end: 20170131
  16. DOLIPRANE [Concomitant]
     Active Substance: ACETAMINOPHEN
     Route: 048
     Dates: start: 20171114, end: 20171114
  17. CETIRIZINE [Concomitant]
     Active Substance: CETIRIZINE HYDROCHLORIDE
     Route: 048
     Dates: start: 20170131, end: 20170131

REACTIONS (3)
  - Delirium [Recovered/Resolved]
  - Hallucination [Recovered/Resolved]
  - Hallucination [Recovered/Resolved]

NARRATIVE: CASE EVENT DATE: 20170227
